FAERS Safety Report 8883996 (Version 1)
Quarter: 2012Q4

REPORT INFORMATION
  Report Type: 
  Country: US (occurrence: US)
  Receive Date: 20121102
  Receipt Date: 20121102
  Transmission Date: 20130627
  Serious: No
  Sender: FDA-Public Use
  Company Number: US-ASTRAZENECA-2012SE26193

PATIENT
  Age: 82 Year
  Sex: Male
  Weight: 79.4 kg

DRUGS (7)
  1. CRESTOR [Suspect]
     Indication: BLOOD CHOLESTEROL INCREASED
     Route: 048
     Dates: start: 201110, end: 201201
  2. CRESTOR [Suspect]
     Indication: BLOOD CHOLESTEROL INCREASED
     Route: 048
     Dates: start: 201201, end: 201202
  3. CRESTOR [Suspect]
     Indication: BLOOD CHOLESTEROL INCREASED
     Route: 048
     Dates: start: 201202
  4. ALLOPURINOL [Concomitant]
     Indication: GOUT
  5. CLONIDINE [Concomitant]
  6. ZYAC [Concomitant]
  7. AMLODIPINE [Concomitant]

REACTIONS (2)
  - Diarrhoea [Unknown]
  - Gout [Unknown]
